FAERS Safety Report 21976523 (Version 1)
Quarter: 2023Q1

REPORT INFORMATION
  Report Type: Spontaneous
  Country: CA (occurrence: CA)
  Receive Date: 20230210
  Receipt Date: 20230210
  Transmission Date: 20230417
  Serious: Yes (Other)
  Sender: FDA-Public Use
  Company Number: CA-CELLTRION INC.-2022CA010930

PATIENT

DRUGS (7)
  1. INFLECTRA [Suspect]
     Active Substance: INFLIXIMAB-DYYB
     Indication: Crohn^s disease
     Dosage: 400 MG (WEEKS 0,2,6 THEN EVERY 8 WEEKS)
     Route: 042
     Dates: start: 20210916
  2. INFLECTRA [Suspect]
     Active Substance: INFLIXIMAB-DYYB
     Dosage: 400 MG (WEEKS 0,2,6 THEN EVERY 8 WEEKS)
     Route: 042
     Dates: start: 20220412
  3. INFLECTRA [Suspect]
     Active Substance: INFLIXIMAB-DYYB
     Dosage: 400 MG (WEEKS 0,2,6 THEN EVERY 8 WEEKS)
     Route: 042
     Dates: start: 20220620
  4. INFLECTRA [Suspect]
     Active Substance: INFLIXIMAB-DYYB
     Dosage: 400 MG (WEEKS 0,2,6 THEN EVERY 8 WEEKS)
     Route: 042
     Dates: start: 20220815
  5. INFLECTRA [Suspect]
     Active Substance: INFLIXIMAB-DYYB
     Dosage: 400 MG (WEEKS 0,2,6 THEN EVERY 8 WEEKS)
     Route: 042
     Dates: start: 20221011, end: 20221011
  6. INFLECTRA [Suspect]
     Active Substance: INFLIXIMAB-DYYB
     Dosage: 400 MG EVERY 8 WEEKS
     Route: 042
     Dates: start: 20230201
  7. PREDNISONE [Concomitant]
     Active Substance: PREDNISONE
     Dosage: 1 DF, DOSING INFORMATION NOT AVAILABLE - UNKNOWN IF ONGOING OR DISCONTINUED
     Route: 065
     Dates: start: 20210826

REACTIONS (4)
  - Bradycardia [Not Recovered/Not Resolved]
  - Inappropriate schedule of product administration [Unknown]
  - Off label use [Unknown]
  - Intentional product use issue [Unknown]

NARRATIVE: CASE EVENT DATE: 20230201
